FAERS Safety Report 10143064 (Version 1)
Quarter: 2014Q2

REPORT INFORMATION
  Report Type: Spontaneous
  Country: US (occurrence: None)
  Receive Date: 20140429
  Receipt Date: 20140429
  Transmission Date: 20141212
  Serious: Yes (Disabling)
  Sender: FDA-Public Use
  Company Number: None

PATIENT
  Age: 54 Year
  Sex: Female
  Weight: 63.5 kg

DRUGS (2)
  1. INFERGEN [Suspect]
     Indication: HEPATITIS C
     Dosage: INJECTIONS; 3 SHOTS PER WEEK; INJECTED IN STOMACH
  2. RIBAVIRIN [Suspect]
     Indication: HEPATITIS C
     Dosage: 5 PILLS; ONCE DAILY

REACTIONS (4)
  - Vertigo positional [None]
  - Nausea [None]
  - Vomiting [None]
  - Ototoxicity [None]
